FAERS Safety Report 18590633 (Version 1)
Quarter: 2020Q4

REPORT INFORMATION
  Report Type: Spontaneous
  Country: GB (occurrence: GB)
  Receive Date: 20201208
  Receipt Date: 20201208
  Transmission Date: 20210114
  Serious: Yes (Other)
  Sender: FDA-Public Use
  Company Number: GB-MYLANLABS-2020M1099074

PATIENT
  Age: 72 Year
  Sex: Female
  Weight: 78 kg

DRUGS (12)
  1. TRAMULIEF [Concomitant]
     Active Substance: TRAMADOL HYDROCHLORIDE
     Dosage: 2 DOSAGE FORM, QD
     Dates: start: 20160715
  2. CLENIL MODULITE [Concomitant]
     Active Substance: BECLOMETHASONE DIPROPIONATE
     Dosage: 4 DOSAGE FORM, QD
     Route: 055
     Dates: start: 20181214
  3. LOSARTAN. [Concomitant]
     Active Substance: LOSARTAN
     Dosage: 1 DOSAGE FORM, QD
     Dates: start: 20200615
  4. SIMVASTATIN. [Concomitant]
     Active Substance: SIMVASTATIN
     Dosage: 1 DOSAGE FORM, QD
     Dates: start: 20150324, end: 20200930
  5. LEVOTHYROXINE. [Concomitant]
     Active Substance: LEVOTHYROXINE
     Dosage: EACH MORNING
     Dates: start: 20200615
  6. AMITRIPTYLINE HYDROCHLORIDE. [Concomitant]
     Active Substance: AMITRIPTYLINE HYDROCHLORIDE
     Dosage: EACH NIGHT
     Dates: start: 20200615
  7. ROSUVASTATIN. [Suspect]
     Active Substance: ROSUVASTATIN
     Indication: PRODUCT USED FOR UNKNOWN INDICATION
     Dosage: 5 MILLIGRAM
     Dates: start: 20200930
  8. NASONEX [Concomitant]
     Active Substance: MOMETASONE FUROATE
     Dosage: 2 DOSAGE FORM, QD
     Dates: start: 20150324
  9. AMLODIPINE [Concomitant]
     Active Substance: AMLODIPINE BESYLATE
     Dosage: 1 DOSAGE FORM, QD
     Dates: start: 20190116, end: 20200930
  10. TRAMADOL. [Concomitant]
     Active Substance: TRAMADOL
     Dosage: 1-2 FOUR TIMES DAILY
     Dates: start: 20160714
  11. SALBUTAMOL [Concomitant]
     Active Substance: ALBUTEROL
     Dosage: 2 DOSAGE FORM
     Route: 055
     Dates: start: 20180209
  12. MONTELUKAST [Concomitant]
     Active Substance: MONTELUKAST SODIUM
     Dosage: AT NIGHT
     Dates: start: 20160519

REACTIONS (2)
  - Dermatitis allergic [Recovered/Resolved]
  - Arthralgia [Unknown]

NARRATIVE: CASE EVENT DATE: 20201027
